APPROVED DRUG PRODUCT: AMPICILLIN TRIHYDRATE
Active Ingredient: AMPICILLIN/AMPICILLIN TRIHYDRATE
Strength: EQ 500MG BASE
Dosage Form/Route: CAPSULE;ORAL
Application: A216554 | Product #002 | TE Code: AB
Applicant: AUROBINDO PHARMA LTD
Approved: Oct 31, 2023 | RLD: No | RS: No | Type: RX